FAERS Safety Report 5808105-5 (Version None)
Quarter: 2008Q3

REPORT INFORMATION
  Report Type: 
  Country: None (occurrence: None)
  Receive Date: 20080708
  Receipt Date: 20080624
  Transmission Date: 20090109
  Serious: Yes (Hospitalization)
  Sender: FDA-Public Use
  Company Number: 08P-028-0459764-00

PATIENT
  Age: 4 Month
  Sex: Male

DRUGS (7)
  1. SYNAGIS [Suspect]
     Indication: ANTIVIRAL PROPHYLAXIS
     Dosage: 34 MG, INTRAMUSCULAR, 30 MG, INTRAMUSCULAR
     Route: 030
     Dates: start: 20071210, end: 20071210
  2. SYNAGIS [Suspect]
     Indication: ANTIVIRAL PROPHYLAXIS
     Dosage: 34 MG, INTRAMUSCULAR, 30 MG, INTRAMUSCULAR
     Route: 030
     Dates: start: 20071231, end: 20071231
  3. PHYTOMENADIONE [Concomitant]
  4. URSODIEL [Concomitant]
  5. ALDACTACID [Concomitant]
  6. RANITIDINE HYDROCHLORIDE [Concomitant]
  7. TRIVISOL [Concomitant]

REACTIONS (3)
  - CHOLESTASIS [None]
  - INFLUENZA [None]
  - LOWER RESPIRATORY TRACT INFECTION [None]
